FAERS Safety Report 5713163-2 (Version None)
Quarter: 2008Q2

REPORT INFORMATION
  Report Type: 
  Country: None (occurrence: None)
  Receive Date: 20080422
  Receipt Date: 20010524
  Transmission Date: 20081010
  Serious: Yes (Other)
  Sender: FDA-Public Use
  Company Number: GB-JNJFOC-20080402925

PATIENT
  Age: 48 Year
  Sex: Female
  Weight: 50 kg

DRUGS (2)
  1. IBUPROFEN [Suspect]
     Indication: ARTHRALGIA
     Route: 048
  2. MOCLOBEMIDE [Interacting]
     Indication: DEPRESSION
     Dosage: 300-450 MG
     Route: 048

REACTIONS (2)
  - DRUG INTERACTION [None]
  - VISION BLURRED [None]
